FAERS Safety Report 9632193 (Version 2)
Quarter: 2013Q4

REPORT INFORMATION
  Report Type: Spontaneous
  Country: GR (occurrence: GR)
  Receive Date: 20131018
  Receipt Date: 20131021
  Transmission Date: 20140711
  Serious: Yes (Hospitalization, Other)
  Sender: FDA-Public Use
  Company Number: GR-GILEAD-2013-0085676

PATIENT
  Sex: Female

DRUGS (2)
  1. AMBRISENTAN [Suspect]
     Indication: PULMONARY HYPERTENSION
     Dosage: UNK
     Route: 048
     Dates: start: 201308, end: 20130930
  2. AMBRISENTAN [Suspect]
     Indication: SCLERODERMA

REACTIONS (2)
  - Pulmonary oedema [Recovered/Resolved]
  - Oedema peripheral [Unknown]
